FAERS Safety Report 7491340-0 (Version None)
Quarter: 2011Q2

REPORT INFORMATION
  Report Type: 
  Country: None (occurrence: None)
  Receive Date: 20110518
  Receipt Date: 20110518
  Transmission Date: 20111010
  Serious: Yes (Hospitalization)
  Sender: FDA-Public Use
  Company Number: None

PATIENT
  Sex: Female
  Weight: 81.5 kg

DRUGS (5)
  1. BAFETINIB [Suspect]
     Indication: GLIOBLASTOMA
     Dosage: 240 MG BID PO
     Route: 048
     Dates: start: 20110114, end: 20110119
  2. KEPPRA [Concomitant]
  3. MIRALAX [Concomitant]
  4. MULTI-VITAMIN [Concomitant]
  5. PHENERGAN HCL [Concomitant]

REACTIONS (3)
  - WOUND INFECTION [None]
  - INTRACRANIAL HYPOTENSION [None]
  - POST PROCEDURAL COMPLICATION [None]
